FAERS Safety Report 22519429 (Version 1)
Quarter: 2023Q2

REPORT INFORMATION
  Report Type: Report from Study
  Country: US (occurrence: US)
  Receive Date: 20230605
  Receipt Date: 20230605
  Transmission Date: 20230722
  Serious: Yes (Other)
  Sender: FDA-Public Use
  Company Number: US-TAKEDA-2021TUS036606

PATIENT
  Age: 55 Year
  Sex: Female

DRUGS (1)
  1. HUMAN IMMUNOGLOBULIN G [Suspect]
     Active Substance: HUMAN IMMUNOGLOBULIN G
     Indication: Primary immunodeficiency syndrome
     Dosage: UNK
     Route: 065
     Dates: start: 202011

REACTIONS (11)
  - Von Willebrand^s disease [Not Recovered/Not Resolved]
  - Peripheral swelling [Unknown]
  - Temperature intolerance [Unknown]
  - Sinusitis [Unknown]
  - COVID-19 [Not Recovered/Not Resolved]
  - Weight increased [Unknown]
  - Rash pruritic [Unknown]
  - Burning sensation [Unknown]
  - Blood pressure increased [Unknown]
  - Pain in extremity [Not Recovered/Not Resolved]
  - Fatigue [Unknown]

NARRATIVE: CASE EVENT DATE: 20221201
